FAERS Safety Report 8170456-X (Version None)
Quarter: 2012Q1

REPORT INFORMATION
  Report Type: 
  Country: None (occurrence: None)
  Receive Date: 20120104
  Receipt Date: 20111115
  Transmission Date: 20120608
  Serious: No
  Sender: FDA-Public Use
  Company Number: 2011HGS-002806

PATIENT
  Age: 55 Year
  Sex: Female

DRUGS (12)
  1. METHOTREXATE [Concomitant]
  2. HYDROCHLOROTHIAZIDE [Concomitant]
  3. VITAMIN D(ERGOCALCIFEROL)(ERGOCALCIFEROL) [Concomitant]
  4. HYDROCODONE(HYDROCODONE)(HYDROCODONE) [Concomitant]
  5. PHENERGAN(PROMETHAZINE HYDROCHLORIDE)(PROMETHAZINE HYDROCHLORIDE) [Concomitant]
  6. VOLTAREN(DICLOFENAC POTASSIUM)(DICLOFENAC POTASSIUM) [Concomitant]
  7. NORVASC [Concomitant]
  8. NEXIUM [Concomitant]
  9. FOLIC ACID [Concomitant]
  10. ACYCLOVIR(ACICLOVIR)(ACICLOVIR [Concomitant]
  11. BENLYSTA [Suspect]
     Indication: SYSTEMIC LUPUS ERYTHEMATOSUS
     Dosage: 1 IN 28 D, INTRAVENOUS DRIP
     Route: 041
     Dates: start: 20110501
  12. FENTANYL [Concomitant]

REACTIONS (2)
  - PYREXIA [None]
  - CHILLS [None]
